FAERS Safety Report 11246623 (Version 1)
Quarter: 2015Q3

REPORT INFORMATION
  Report Type: Spontaneous
  Country: US (occurrence: None)
  Receive Date: 20150706
  Receipt Date: 20150706
  Transmission Date: 20151125
  Serious: Yes (Hospitalization)
  Sender: FDA-Public Use
  Company Number: 1635370

PATIENT
  Age: 3 Year
  Sex: Male

DRUGS (3)
  1. FLECAINIDE ACETATE. [Suspect]
     Active Substance: FLECAINIDE ACETATE
     Indication: ARRHYTHMIA
  2. FLECAINIDE [Concomitant]
     Active Substance: FLECAINIDE
  3. LACOSAMIDE [Suspect]
     Active Substance: LACOSAMIDE
     Indication: SEIZURE
     Dosage: 2X (4 HRS BETWEEN DOSES)

REACTIONS (2)
  - Haemodynamic instability [None]
  - Atrial tachycardia [None]
